FAERS Safety Report 21885972 (Version 1)
Quarter: 2023Q1

REPORT INFORMATION
  Report Type: Spontaneous
  Country: US (occurrence: US)
  Receive Date: 20230119
  Receipt Date: 20230119
  Transmission Date: 20230418
  Serious: Yes (Other)
  Sender: FDA-Public Use
  Company Number: US-PROGENICS PHARMACEUTICALS/LANTHEUS HOLDINGS-LMI-2023-00045

PATIENT
  Age: 45 Year
  Sex: Male

DRUGS (3)
  1. AZEDRA [Suspect]
     Active Substance: IOBENGUANE I-131
     Indication: Phaeochromocytoma
     Dosage: 5 MILLICURIE, SINGLE
     Route: 042
     Dates: start: 202207, end: 202207
  2. AZEDRA [Suspect]
     Active Substance: IOBENGUANE I-131
     Dosage: 200 MILLICURIE, SINGLE
     Route: 042
     Dates: start: 20220725, end: 20220725
  3. AZEDRA [Suspect]
     Active Substance: IOBENGUANE I-131
     Dosage: 200 MILLICURIE, SINGLE
     Route: 042
     Dates: start: 20221024, end: 20221024

REACTIONS (6)
  - Neoplasm [Not Recovered/Not Resolved]
  - Disease progression [Not Recovered/Not Resolved]
  - Metastasis [Not Recovered/Not Resolved]
  - Metastases to bone [Not Recovered/Not Resolved]
  - Hip fracture [Not Recovered/Not Resolved]
  - General physical health deterioration [Not Recovered/Not Resolved]

NARRATIVE: CASE EVENT DATE: 20230101
